FAERS Safety Report 7460323-9 (Version None)
Quarter: 2011Q2

REPORT INFORMATION
  Report Type: 
  Country: None (occurrence: None)
  Receive Date: 20110505
  Receipt Date: 20110429
  Transmission Date: 20111010
  Serious: Yes (Hospitalization)
  Sender: FDA-Public Use
  Company Number: A0875331A

PATIENT
  Age: 70 Year
  Sex: Male
  Weight: 97.7 kg

DRUGS (5)
  1. FLOMAX [Concomitant]
  2. TRICOR [Concomitant]
  3. FOLIC ACID [Concomitant]
  4. ALTACE [Concomitant]
  5. AVANDIA [Suspect]
     Dosage: 8MG PER DAY
     Route: 048
     Dates: end: 20070511

REACTIONS (3)
  - SUPRAVENTRICULAR TACHYCARDIA [None]
  - CORONARY ARTERY DISEASE [None]
  - ATRIAL FIBRILLATION [None]
